FAERS Safety Report 4855061-2 (Version None)
Quarter: 2005Q4

REPORT INFORMATION
  Report Type: 
  Country: None (occurrence: None)
  Receive Date: 20051215
  Receipt Date: 20051116
  Transmission Date: 20060501
  Serious: Yes (Death)
  Sender: FDA-Public Use
  Company Number: JP-SANOFI-SYNTHELABO-A01200508037

PATIENT
  Sex: Male

DRUGS (22)
  1. OXALIPLATIN [Suspect]
     Indication: LARGE INTESTINE CARCINOMA
     Route: 042
     Dates: start: 20051012, end: 20051012
  2. ISOVORIN [Suspect]
     Route: 040
     Dates: start: 20051012, end: 20051012
  3. ISOVORIN [Suspect]
     Route: 042
     Dates: start: 20051012, end: 20051013
  4. FLUOROURACIL [Suspect]
     Route: 042
     Dates: start: 20051012, end: 20051013
  5. FLUTIDE [Concomitant]
     Dates: start: 20041125, end: 20051014
  6. THEO-DUR [Concomitant]
     Route: 048
     Dates: start: 20041125, end: 20051026
  7. WARFARIN [Concomitant]
     Route: 048
  8. TORSEMIDE [Concomitant]
     Route: 048
     Dates: start: 20041209, end: 20051026
  9. ALDACTONE [Concomitant]
     Route: 048
     Dates: start: 20041209, end: 20051010
  10. LANIRAPID [Concomitant]
     Route: 048
     Dates: start: 20050210, end: 20051026
  11. LASIX [Concomitant]
     Route: 048
     Dates: start: 20050210, end: 20051026
  12. FRANDOL [Concomitant]
     Dates: start: 20050621, end: 20051026
  13. ZYLORIC [Concomitant]
     Route: 048
     Dates: start: 20050726, end: 20051014
  14. FERROMIA [Concomitant]
     Route: 048
     Dates: start: 20050726, end: 20051016
  15. MAGNESIUM OXIDE [Concomitant]
     Route: 048
     Dates: start: 20051003, end: 20051013
  16. PURSENNID [Concomitant]
     Route: 048
     Dates: start: 20051003, end: 20051013
  17. KYTRIL [Concomitant]
     Dates: start: 20051012, end: 20051012
  18. DECADRON [Concomitant]
     Dates: start: 20051012, end: 20051012
  19. DECADRON [Concomitant]
     Route: 048
     Dates: start: 20051012, end: 20051012
  20. CALCICOL [Concomitant]
     Dates: start: 20051012, end: 20051012
  21. MAGNESIUM SULFATE [Concomitant]
     Dates: start: 20051012, end: 20051012
  22. LORAZEPAM [Concomitant]
     Route: 048
     Dates: start: 20051012, end: 20051013

REACTIONS (3)
  - CARDIAC ARREST [None]
  - RESPIRATORY ARREST [None]
  - URINE OUTPUT DECREASED [None]
